FAERS Safety Report 18307409 (Version 2)
Quarter: 2020Q4

REPORT INFORMATION
  Report Type: Report from Study
  Country: MX (occurrence: MX)
  Receive Date: 20200924
  Receipt Date: 20201008
  Transmission Date: 20210113
  Serious: Yes (Hospitalization, Disabling)
  Sender: FDA-Public Use
  Company Number: NVSC2020MX258626

PATIENT
  Age: 45 Year
  Sex: Male
  Weight: 82 kg

DRUGS (5)
  1. ASPIRIN. [Concomitant]
     Active Substance: ASPIRIN
     Indication: ISCHAEMIC CARDIOMYOPATHY
     Dosage: 100 MG, Q24H (EVERY 24 HOURS)
     Route: 048
     Dates: start: 201912
  2. ENTRESTO [Suspect]
     Active Substance: SACUBITRIL\VALSARTAN
     Indication: CARDIAC FAILURE
     Dosage: 50 MG, Q12H (EVERY 12 HOURS)
     Route: 048
  3. BISOPROLOL [Concomitant]
     Active Substance: BISOPROLOL
     Indication: CARDIAC FAILURE
     Dosage: 2.5 MG, Q24H(EVERY 24 HOURS)
     Route: 048
     Dates: start: 201912
  4. ENTRESTO [Suspect]
     Active Substance: SACUBITRIL\VALSARTAN
     Indication: CATHETER PLACEMENT
     Dosage: 100 MG, Q12H (EVERY 12 HOURS)
     Route: 048
     Dates: start: 201912
  5. SPIRONOLACTONE. [Concomitant]
     Active Substance: SPIRONOLACTONE
     Indication: CARDIAC FAILURE
     Dosage: 25 MG, Q24H (EVERY 24 HOURS)
     Route: 048
     Dates: start: 201912

REACTIONS (13)
  - Skin discolouration [Unknown]
  - Rash [Unknown]
  - Product use in unapproved indication [Unknown]
  - Haematemesis [Unknown]
  - Wrong technique in product usage process [Unknown]
  - Gastrointestinal haemorrhage [Unknown]
  - Product prescribing error [Unknown]
  - Oedema [Not Recovered/Not Resolved]
  - Pruritus [Unknown]
  - Gastric mucosal lesion [Not Recovered/Not Resolved]
  - Urticaria [Not Recovered/Not Resolved]
  - Anaemia [Not Recovered/Not Resolved]
  - Drug hypersensitivity [Unknown]

NARRATIVE: CASE EVENT DATE: 20200916
